FAERS Safety Report 7031600-0 (Version None)
Quarter: 2010Q4

REPORT INFORMATION
  Report Type: 
  Country: None (occurrence: None)
  Receive Date: 20101006
  Receipt Date: 20101006
  Transmission Date: 20110411
  Serious: Yes (Other)
  Sender: FDA-Public Use
  Company Number: None

PATIENT
  Sex: Female

DRUGS (3)
  1. LAMOTRIGINE [Suspect]
     Indication: BIPOLAR I DISORDER
     Dosage: 200 MG PO Q AM SUSPECT 2-3 MONTHS DURATION
     Route: 048
  2. WELLBUTRIN [Concomitant]
  3. SEROQUEL [Concomitant]

REACTIONS (6)
  - ACTIVITIES OF DAILY LIVING IMPAIRED [None]
  - ANHEDONIA [None]
  - ANTISOCIAL BEHAVIOUR [None]
  - APATHY [None]
  - DEPRESSED MOOD [None]
  - HYPOAESTHESIA [None]
